FAERS Safety Report 19766677 (Version 1)
Quarter: 2021Q3

REPORT INFORMATION
  Report Type: Spontaneous
  Country: US (occurrence: US)
  Receive Date: 20210826
  Receipt Date: 20210826
  Transmission Date: 20211014
  Serious: Yes (Hospitalization)
  Sender: FDA-Public Use
  Company Number: None

PATIENT
  Age: 68 Year
  Sex: Female

DRUGS (1)
  1. ENTECAVIR 0.5 MG SOLCO HEALTHCARE [Suspect]
     Active Substance: ENTECAVIR
     Indication: CHRONIC HEPATITIS B
     Route: 048

REACTIONS (2)
  - Fluid retention [None]
  - Swelling [None]

NARRATIVE: CASE EVENT DATE: 20210706
